FAERS Safety Report 24943520 (Version 1)
Quarter: 2025Q1

REPORT INFORMATION
  Report Type: Spontaneous
  Country: US (occurrence: None)
  Receive Date: 20250207
  Receipt Date: 20250207
  Transmission Date: 20250408
  Serious: Yes (Life-Threatening, Disabling)
  Sender: FDA-CTU
  Company Number: None

PATIENT
  Age: 81 Year
  Sex: Female
  Weight: 62.4 kg

DRUGS (3)
  1. BALFAXAR [Suspect]
     Active Substance: COAGULATION FACTOR IX HUMAN\COAGULATION FACTOR VII HUMAN\COAGULATION FACTOR X HUMAN\PROTEIN C\PROTEI
     Indication: Factor Xa activity abnormal
     Route: 042
     Dates: start: 20250107, end: 20250107
  2. prothrombin complex human-lan (Balfaxar) [Concomitant]
     Dates: start: 20250107, end: 20250107
  3. APIXABAN [Suspect]
     Active Substance: APIXABAN

REACTIONS (3)
  - Fall [None]
  - Subarachnoid haemorrhage [None]
  - Cerebral haemorrhage [None]

NARRATIVE: CASE EVENT DATE: 20250107
